FAERS Safety Report 8443726-5 (Version None)
Quarter: 2012Q2

REPORT INFORMATION
  Report Type: 
  Country: None (occurrence: None)
  Receive Date: 20120618
  Receipt Date: 20120611
  Transmission Date: 20120825
  Serious: Yes (Hospitalization, Other)
  Sender: FDA-Public Use
  Company Number: FR-ELI_LILLY_AND_COMPANY-FR201206002962

PATIENT
  Sex: Female

DRUGS (6)
  1. PROZAC [Suspect]
     Dosage: 20 MG, QD
     Route: 048
     Dates: start: 20120210
  2. NEXIUM [Concomitant]
     Dosage: UNK
     Dates: start: 20120210
  3. MYCOSTER [Concomitant]
     Dosage: UNK
     Dates: start: 20120210
  4. ACETAMINOPHEN [Concomitant]
     Dosage: 500 MG, QID
     Dates: start: 20120210
  5. STILNOX [Concomitant]
     Dosage: 10 MG, QD
     Dates: start: 20120210
  6. KEPPRA [Concomitant]
     Dosage: 500 MG, TID
     Dates: start: 20120210

REACTIONS (3)
  - EPILEPSY [None]
  - DRUG INEFFECTIVE [None]
  - DRUG INTERACTION [None]
